FAERS Safety Report 12211818 (Version 2)
Quarter: 2016Q2

REPORT INFORMATION
  Report Type: Spontaneous
  Country: US (occurrence: US)
  Receive Date: 20160325
  Receipt Date: 20160411
  Transmission Date: 20160815
  Serious: Yes (Hospitalization)
  Sender: FDA-Public Use
  Company Number: US-TEVA-645183USA

PATIENT
  Age: 74 Year
  Sex: Female

DRUGS (34)
  1. SODIUM POTASSIUM PHOSPHATE PACK [Concomitant]
     Dates: start: 20160210, end: 20160210
  2. HYDROCHLOROTHIAZIDE. [Concomitant]
     Active Substance: HYDROCHLOROTHIAZIDE
     Dates: start: 20160211
  3. CELECOXIB;IBUPROFEN/NAPROXEN;PLACEBO [Concomitant]
     Active Substance: CELECOXIB\IBUPROFEN\NAPROXEN\PLACEBO
     Indication: RHEUMATOID ARTHRITIS
  4. LEVOTHYROXINE. [Concomitant]
     Active Substance: LEVOTHYROXINE
     Indication: HYPOTHYROIDISM
     Dates: start: 1982
  5. LIPITOR [Concomitant]
     Active Substance: ATORVASTATIN CALCIUM
     Dates: start: 20160130, end: 20160210
  6. DEXAMETHASONE. [Concomitant]
     Active Substance: DEXAMETHASONE
     Dates: start: 20160211
  7. KEPPRA [Concomitant]
     Active Substance: LEVETIRACETAM
     Dates: start: 20160209, end: 20160209
  8. SODIUM CHLORIDE. [Concomitant]
     Active Substance: SODIUM CHLORIDE
     Dates: start: 20160209, end: 20160209
  9. VALSARTAN. [Concomitant]
     Active Substance: VALSARTAN
     Dates: start: 20160211
  10. BAKING SODA AND SALT MIXTURE RINSE [Concomitant]
     Dates: start: 20150819
  11. SODIUM POTASSIUM PHOSPHATE PACK [Concomitant]
     Dates: start: 20160131, end: 20160209
  12. PANTOPRAZOLE [Concomitant]
     Active Substance: PANTOPRAZOLE SODIUM
     Dates: start: 20160210, end: 20160210
  13. DEXAMETHASONE. [Concomitant]
     Active Substance: DEXAMETHASONE
     Dates: start: 20160208, end: 20160210
  14. D5W [Concomitant]
     Dates: start: 20160208, end: 20160210
  15. HYDROCHLOROTHIAZIDE. [Concomitant]
     Active Substance: HYDROCHLOROTHIAZIDE
     Dates: start: 20160207, end: 20160208
  16. XYLOCAINE [Concomitant]
     Active Substance: LIDOCAINE HYDROCHLORIDE
     Dates: start: 20160209, end: 20160209
  17. ACETAMINOPHEN\HYDROCODONE BITARTRATE [Concomitant]
     Active Substance: ACETAMINOPHEN\HYDROCODONE BITARTRATE
     Dates: start: 20160210, end: 20160210
  18. NEXIUM [Concomitant]
     Active Substance: ESOMEPRAZOLE MAGNESIUM
     Indication: GASTROINTESTINAL DISORDER
     Dosage: 20 MILLIGRAM DAILY;
     Route: 048
     Dates: start: 20120915, end: 20160112
  19. KEPPRA [Concomitant]
     Active Substance: LEVETIRACETAM
     Dates: start: 20160203, end: 20160208
  20. METOPROLOL. [Concomitant]
     Active Substance: METOPROLOL
     Dates: start: 20160211
  21. METHOTREXATE [Suspect]
     Active Substance: METHOTREXATE
     Indication: CENTRAL NERVOUS SYSTEM LYMPHOMA
     Dosage: ONCE
     Route: 042
     Dates: start: 20160222, end: 20160222
  22. FOLIC ACID. [Concomitant]
     Active Substance: FOLIC ACID
     Dates: start: 201507
  23. DIGOXIN. [Concomitant]
     Active Substance: DIGOXIN
     Dates: start: 20160210, end: 20160210
  24. KEPPRA [Concomitant]
     Active Substance: LEVETIRACETAM
     Dates: start: 20160210
  25. MAGNESIUM SULFATE. [Concomitant]
     Active Substance: MAGNESIUM SULFATE
     Dates: start: 20160209, end: 20160209
  26. FUROSEMIDE. [Concomitant]
     Active Substance: FUROSEMIDE
     Dates: start: 20160210, end: 20160210
  27. HYDROCHLOROTHIAZIDE. [Concomitant]
     Active Substance: HYDROCHLOROTHIAZIDE
     Dates: start: 20160210, end: 20160210
  28. VITAMIN E [Concomitant]
     Active Substance: .ALPHA.-TOCOPHEROL
     Dates: start: 2000
  29. CELECOXIB;IBUPROFEN/NAPROXEN;PLACEBO [Concomitant]
     Active Substance: CELECOXIB\IBUPROFEN\NAPROXEN\PLACEBO
     Indication: OSTEOARTHRITIS
     Route: 065
     Dates: start: 20121012, end: 20160112
  30. VITAMIN D3 [Concomitant]
     Active Substance: CHOLECALCIFEROL
     Dates: start: 201507
  31. LIPITOR [Concomitant]
     Active Substance: ATORVASTATIN CALCIUM
     Dates: start: 20160211
  32. CEFAZOLIN [Concomitant]
     Active Substance: CEFAZOLIN
     Dates: start: 20160208, end: 20160210
  33. CEFAZOLIN [Concomitant]
     Active Substance: CEFAZOLIN
     Dates: start: 20160210
  34. VALSARTAN. [Concomitant]
     Active Substance: VALSARTAN
     Dates: start: 20160210, end: 20160210

REACTIONS (3)
  - Fungal skin infection [Recovering/Resolving]
  - Hypokalaemia [Recovering/Resolving]
  - Hypomagnesaemia [Recovering/Resolving]

NARRATIVE: CASE EVENT DATE: 20160222
